FAERS Safety Report 4879079-9 (Version None)
Quarter: 2006Q1

REPORT INFORMATION
  Report Type: 
  Country: None (occurrence: None)
  Receive Date: 20060111
  Receipt Date: 20060111
  Transmission Date: 20060701
  Serious: Yes (Hospitalization)
  Sender: FDA-Public Use
  Company Number: None

PATIENT
  Age: 72 Year
  Sex: Male
  Weight: 79.8 kg

DRUGS (2)
  1. RANITIDINE [Suspect]
     Indication: PROPHYLAXIS
     Dosage: 100MG, 50MGQ12H, INTRAVEN
     Route: 042
     Dates: start: 20051114, end: 20051125
  2. CEFEPIME HCL [Concomitant]

REACTIONS (1)
  - NEUTROPENIA [None]
